FAERS Safety Report 10423123 (Version 2)
Quarter: 2014Q4

REPORT INFORMATION
  Report Type: Spontaneous
  Country: US (occurrence: None)
  Receive Date: 20140722
  Receipt Date: 20141121
  Transmission Date: 20150528
  Serious: No
  Sender: FDA-Public Use
  Company Number: 163-10004-14060267

PATIENT
  Age: 49 Year
  Sex: Female
  Weight: 93.9 kg

DRUGS (10)
  1. OTEZLA [Suspect]
     Active Substance: APREMILAST
     Indication: PSORIATIC ARTHROPATHY
     Dosage: 60 MG, 2 IN 1 D, PO
     Route: 048
     Dates: start: 20140517
  2. SULFASALAZINE (SULFASALAZINE) (UNKNOWN) [Concomitant]
  3. LYRICA (PREGABALIN) (UNKNOWN) [Concomitant]
  4. SINGULAIR (MONTELUKAST) (UNKNOWN) [Concomitant]
  5. PREVACID (LANSOPRAZOLE) (UNKNOWN) [Concomitant]
  6. PROVENTIL (ATENOLOL) (INHALANT) [Concomitant]
  7. ZOLOFT (SERTRALINE HYDROCHLORIDE) (UNKNOWN) [Concomitant]
  8. BENTYL (DICYCLOVERINE HYDROCHLORIDE) (UNKNOWN) [Concomitant]
  9. ZYRTEC (CETIRIZINE HYDROCHLORIDE) (UNKNOWN) [Concomitant]
  10. BUDESONIDE (BUDESONIDE) (INHALANT) [Concomitant]

REACTIONS (3)
  - Muscle spasms [None]
  - Musculoskeletal stiffness [None]
  - Headache [None]

NARRATIVE: CASE EVENT DATE: 20140526
